FAERS Safety Report 10108298 (Version 1)
Quarter: 2014Q2

REPORT INFORMATION
  Report Type: Spontaneous
  Country: US (occurrence: US)
  Receive Date: 20140425
  Receipt Date: 20140425
  Transmission Date: 20141212
  Serious: No
  Sender: FDA-Public Use
  Company Number: US-009507513-1404USA009951

PATIENT
  Age: 25 Year
  Sex: Female
  Weight: 79.37 kg

DRUGS (1)
  1. IMPLANON [Suspect]
     Indication: CONTRACEPTION
     Dosage: EVERY 3 YEARS , 1 ROD
     Route: 059
     Dates: start: 20130523

REACTIONS (3)
  - Menstruation irregular [Unknown]
  - Menorrhagia [Unknown]
  - Amenorrhoea [Unknown]
